FAERS Safety Report 17477552 (Version 1)
Quarter: 2020Q1

REPORT INFORMATION
  Report Type: Spontaneous
  Country: DE (occurrence: DE)
  Receive Date: 20200228
  Receipt Date: 20200228
  Transmission Date: 20200409
  Serious: Yes (Hospitalization, Other)
  Sender: FDA-Public Use
  Company Number: DE-PFIZER INC-2020085961

PATIENT
  Age: 69 Year
  Sex: Female

DRUGS (9)
  1. VITAMIN B KOMPLEX [BIOTIN;FOLIC ACID;NICOTINIC ACID;PANTOTHENIC ACID;P [Concomitant]
     Dosage: NK MG, 1-0-0-0
  2. FUROSEMIDE. [Suspect]
     Active Substance: FUROSEMIDE
     Dosage: 40 MG, 1-0-0-0
  3. PANTOPRAZOLE [Concomitant]
     Active Substance: PANTOPRAZOLE
     Dosage: 40 MG, 0-0-1-0
  4. IBUPROFEN. [Concomitant]
     Active Substance: IBUPROFEN
     Dosage: 400 MG, 1-0-1-0
  5. FOLIC ACID. [Concomitant]
     Active Substance: FOLIC ACID
     Dosage: 5 MG, 1-0-0-0
  6. NALOXONE HYDROCHLORIDE/TILIDINE HYDROCHLORIDE [Suspect]
     Active Substance: NALOXONE HYDROCHLORIDE\TILIDINE HYDROCHLORIDE
     Dosage: 8 (UNIT NOT REPORTED), UNK
  7. SPIRONOLACTON [Concomitant]
     Active Substance: SPIRONOLACTONE
     Dosage: 50 MG, 1-1-0-0
  8. LORAZEPAM. [Suspect]
     Active Substance: LORAZEPAM
     Dosage: 0.5 MG, 0-0-1-0
  9. DOCITON [Suspect]
     Active Substance: PROPRANOLOL HYDROCHLORIDE
     Dosage: 40 MG, 0.5-0-0.5-0

REACTIONS (3)
  - Fracture [Unknown]
  - Blood potassium decreased [Unknown]
  - Fall [Unknown]

NARRATIVE: CASE EVENT DATE: 20191112
